FAERS Safety Report 10591349 (Version 3)
Quarter: 2015Q1

REPORT INFORMATION
  Report Type: Spontaneous
  Country: US (occurrence: US)
  Receive Date: 20141118
  Receipt Date: 20150305
  Transmission Date: 20150720
  Serious: Yes (Hospitalization, Other)
  Sender: FDA-Public Use
  Company Number: US-MALLINCKRODT-T201403581

PATIENT
  Age: 6 Year
  Sex: Male

DRUGS (9)
  1. DIAZEPAM. [Concomitant]
     Active Substance: DIAZEPAM
     Dosage: 1.5 MG, QD, EVERY NIGHT
     Route: 048
  2. ZOFRAN [Concomitant]
     Active Substance: ONDANSETRON HYDROCHLORIDE
     Indication: NAUSEA
     Dosage: 2 MG, Q6H PRN
     Route: 048
  3. GABAPENTIN. [Concomitant]
     Active Substance: GABAPENTIN
     Dosage: 375 MG, QD (7.5 ML EVERY NIGHT)
     Route: 048
  4. BACLOFEN. [Suspect]
     Active Substance: BACLOFEN
     Indication: DRUG WITHDRAWAL SYNDROME
     Dosage: 10 MG, QID
     Route: 048
  5. RANITIDINE [Concomitant]
     Active Substance: RANITIDINE\RANITIDINE HYDROCHLORIDE
     Dosage: 60 MG, QD
     Route: 048
  6. MIRALAX [Concomitant]
     Active Substance: POLYETHYLENE GLYCOL 3350
     Dosage: 17 G, BID
     Route: 048
  7. GABLOFEN [Suspect]
     Active Substance: BACLOFEN
     Indication: MUSCLE SPASTICITY
     Dosage: 997.5 MCG/DAY (FLEX DOSE APPROX 1000)
     Route: 037
  8. ARTANE [Concomitant]
     Active Substance: TRIHEXYPHENIDYL HYDROCHLORIDE
     Dosage: 3 MG, AT 0800, 1400, 4 MG AT 2100
     Route: 048
  9. CHOLECALCIFEROL [Concomitant]
     Active Substance: CHOLECALCIFEROL
     Dosage: 400 U, QD
     Route: 048

REACTIONS (13)
  - Unresponsive to stimuli [Recovered/Resolved]
  - Overdose [Unknown]
  - Hypotension [Recovered/Resolved]
  - Seizure [Recovered/Resolved]
  - Drug withdrawal syndrome [Recovered/Resolved]
  - Dyspnoea [Recovered/Resolved]
  - Dystonia [Recovered/Resolved]
  - Apnoea [Recovered/Resolved]
  - Bradycardia [Recovered/Resolved]
  - Hypotonia [Recovered/Resolved]
  - Sedation [Recovered/Resolved]
  - Rhinovirus infection [Recovered/Resolved]
  - Enterovirus infection [Recovered/Resolved]

NARRATIVE: CASE EVENT DATE: 201406
